FAERS Safety Report 5800169-8 (Version None)
Quarter: 2008Q3

REPORT INFORMATION
  Report Type: 
  Country: None (occurrence: None)
  Receive Date: 20080703
  Receipt Date: 20080625
  Transmission Date: 20090109
  Serious: Yes (Hospitalization)
  Sender: FDA-Public Use
  Company Number: FR-AVENTIS-200812451FR

PATIENT
  Age: 64 Year
  Sex: Female

DRUGS (10)
  1. LOVENOX [Suspect]
     Route: 058
     Dates: start: 20080514, end: 20080529
  2. SOLIAN [Suspect]
     Indication: NEUROSIS
     Route: 048
     Dates: start: 20080507, end: 20080529
  3. EQUANIL [Suspect]
     Indication: ANXIETY
     Route: 048
     Dates: start: 20080514, end: 20080522
  4. EQUANIL [Suspect]
     Route: 048
     Dates: start: 20080522, end: 20080524
  5. LYSANXIA [Suspect]
     Indication: NEUROSIS
     Route: 048
     Dates: start: 20080328, end: 20080507
  6. ANAFRANIL [Suspect]
     Indication: DEPRESSION
     Dosage: DOSE: 25 TO 100 MG DAILY
     Route: 042
     Dates: start: 20080328, end: 20080507
  7. RISPERDAL [Suspect]
     Indication: NEUROSIS
     Route: 048
     Dates: start: 20080328, end: 20080507
  8. CORGARD [Concomitant]
  9. NOCTAMIDE [Concomitant]
     Route: 048
     Dates: start: 20080416
  10. ATARAX [Concomitant]
     Dates: start: 20080519

REACTIONS (2)
  - AGRANULOCYTOSIS [None]
  - LEUKOPENIA [None]
